FAERS Safety Report 4392028-5 (Version None)
Quarter: 2004Q3

REPORT INFORMATION
  Report Type: 
  Country: None (occurrence: None)
  Receive Date: 20040708
  Receipt Date: 20040624
  Transmission Date: 20050211
  Serious: Yes (Other)
  Sender: FDA-Public Use
  Company Number: PHNU2004DE02263

PATIENT
  Sex: Female

DRUGS (1)
  1. LEPONEX / CLOZARIL (CLOZAPINE) [Suspect]
     Dosage: 200 MG, TID
     Route: 048

REACTIONS (3)
  - DRUG LEVEL INCREASED [None]
  - DRUG TOXICITY [None]
  - POISONING [None]
